FAERS Safety Report 22242568 (Version 1)
Quarter: 2023Q2

REPORT INFORMATION
  Report Type: Spontaneous
  Country: US (occurrence: None)
  Receive Date: 20230420
  Receipt Date: 20230420
  Transmission Date: 20230722
  Serious: Yes (Hospitalization)
  Sender: FDA-Public Use
  Company Number: None

PATIENT
  Age: 74 Year
  Sex: Female
  Weight: 62.6 kg

DRUGS (44)
  1. CRESEMBA [Suspect]
     Active Substance: ISAVUCONAZONIUM SULFATE
     Indication: Myelodysplastic syndrome
     Dosage: FREQUENCY : DAILY;?
     Route: 048
     Dates: start: 202303
  2. ACIDOPHILUS LACTOBACILLUS [Concomitant]
  3. ALLOPURINOL [Concomitant]
     Active Substance: ALLOPURINOL
  4. ARICEPT [Concomitant]
     Active Substance: DONEPEZIL HYDROCHLORIDE
  5. BENADRYL [Concomitant]
     Active Substance: DIPHENHYDRAMINE HYDROCHLORIDE
  6. BUDESONIDE\FORMOTEROL [Concomitant]
     Active Substance: BUDESONIDE\FORMOTEROL
  7. CATHFLO ACTIVASE [Concomitant]
     Active Substance: ALTEPLASE
  8. CEFPODOXIME PROXETIL [Concomitant]
     Active Substance: CEFPODOXIME PROXETIL
  9. CIPRO [Concomitant]
     Active Substance: CIPROFLOXACIN HYDROCHLORIDE
  10. CRESTOR [Concomitant]
     Active Substance: ROSUVASTATIN CALCIUM
  11. MELATONIN [Concomitant]
     Active Substance: MELATONIN
  12. DIFICID [Concomitant]
     Active Substance: FIDAXOMICIN
  13. ESOMEPRAZOLE [Concomitant]
     Active Substance: ESOMEPRAZOLE
  14. FAMOTIDINE [Concomitant]
     Active Substance: FAMOTIDINE
  15. FOLIC ACID [Concomitant]
     Active Substance: FOLIC ACID
  16. GABAPENTIN [Concomitant]
     Active Substance: GABAPENTIN
  17. HEPARIN [Concomitant]
     Active Substance: HEPARIN SODIUM
  18. HYDROXYZINE [Concomitant]
     Active Substance: HYDROXYZINE HYDROCHLORIDE
  19. INQOVI [Concomitant]
     Active Substance: CEDAZURIDINE\DECITABINE
  20. ISOPTO TEARS [Concomitant]
     Active Substance: HYPROMELLOSE 2910 (4000 MPA.S)
  21. LEVOFLOXACIN [Concomitant]
     Active Substance: LEVOFLOXACIN
  22. LORAZEPAM [Concomitant]
     Active Substance: LORAZEPAM
  23. LIDOCAINE [Concomitant]
     Active Substance: LIDOCAINE
  24. MIRTAZAPINE [Concomitant]
     Active Substance: MIRTAZAPINE
  25. MUPIROCIN [Concomitant]
     Active Substance: MUPIROCIN
  26. NAFTIFINE [Concomitant]
     Active Substance: NAFTIFINE
  27. ONDANSETRON [Concomitant]
     Active Substance: ONDANSETRON
  28. OXYCONTIN [Concomitant]
     Active Substance: OXYCODONE HYDROCHLORIDE
  29. PANTOPRAZOLE [Concomitant]
     Active Substance: PANTOPRAZOLE
  30. PAROXETINE [Concomitant]
     Active Substance: PAROXETINE
  31. POTASSIUM [Concomitant]
  32. PROLIA [Concomitant]
     Active Substance: DENOSUMAB
  33. PROVENTIL [Concomitant]
     Active Substance: ALBUTEROL
  34. MELATONIN [Concomitant]
     Active Substance: MELATONIN
  35. FEXOFENADINE [Concomitant]
     Active Substance: FEXOFENADINE HYDROCHLORIDE
  36. VITAMIN B12 [Concomitant]
     Active Substance: CYANOCOBALAMIN
  37. SODIUM BICARBONATE [Concomitant]
     Active Substance: SODIUM BICARBONATE
  38. SODIUM CHLORIDE [Concomitant]
     Active Substance: SODIUM CHLORIDE
  39. TRAMADOL [Concomitant]
     Active Substance: TRAMADOL
  40. TYLENOL [Concomitant]
     Active Substance: ACETAMINOPHEN
  41. VALACYCLOVIR [Concomitant]
     Active Substance: VALACYCLOVIR HYDROCHLORIDE
  42. VALTREX [Concomitant]
     Active Substance: VALACYCLOVIR HYDROCHLORIDE
  43. VENCLEXTA [Concomitant]
     Active Substance: VENETOCLAX
  44. VITAMIN D3 [Concomitant]
     Active Substance: CHOLECALCIFEROL

REACTIONS (1)
  - Hospitalisation [None]
